FAERS Safety Report 21362284 (Version 1)
Quarter: 2022Q3

REPORT INFORMATION
  Report Type: Spontaneous
  Country: DE (occurrence: DE)
  Receive Date: 20220922
  Receipt Date: 20220922
  Transmission Date: 20221026
  Serious: Yes (Hospitalization, Other)
  Sender: FDA-Public Use
  Company Number: DE-ADRED-06518-02

PATIENT
  Age: 74 Year
  Sex: Male
  Weight: 92 kg

DRUGS (18)
  1. APIXABAN [Suspect]
     Active Substance: APIXABAN
     Indication: Product used for unknown indication
     Dosage: 5 MILLIGRAM (1-0-1-0, TABLETTEN)
     Route: 048
  2. CANDESARTAN [Suspect]
     Active Substance: CANDESARTAN
     Indication: Product used for unknown indication
     Dosage: 8 MILLIGRAM (0-0-1-0, TABLETTEN)
     Route: 048
  3. CLOPIDOGREL [Suspect]
     Active Substance: CLOPIDOGREL BISULFATE
     Indication: Product used for unknown indication
     Dosage: 75 MILLIGRAM (1-0-0-0, TABLETTEN)
     Route: 048
  4. FEBUXOSTAT [Suspect]
     Active Substance: FEBUXOSTAT
     Indication: Product used for unknown indication
     Dosage: 80 MILLIGRAM (1-0-0-0, TABLETTEN)
     Route: 048
  5. METFORMIN HYDROCHLORIDE [Suspect]
     Active Substance: METFORMIN HYDROCHLORIDE
     Indication: Product used for unknown indication
     Dosage: 500 MILLIGRAM (0-0-1-0, TABLETTEN)
     Route: 048
  6. TORSEMIDE [Suspect]
     Active Substance: TORSEMIDE
     Indication: Product used for unknown indication
     Dosage: 50 MILLIGRAM (1-0-0-0, TABLETTEN)
     Route: 048
  7. BISOPROLOL [Concomitant]
     Active Substance: BISOPROLOL
     Indication: Product used for unknown indication
     Dosage: 5 MILLIGRAM (0.5-0-0.5-0, TABLETTEN)
     Route: 048
  8. BUDESONIDE [Concomitant]
     Active Substance: BUDESONIDE
     Indication: Product used for unknown indication
     Dosage: 200 MICROGRAM (1-0-1-0, HARTKAPSEL MIT PULVER ZUR INHALATION) (HARD CAPSULE WITH INHALATION POWDER)
  9. FORMOTEROL [Concomitant]
     Active Substance: FORMOTEROL
     Indication: Product used for unknown indication
     Dosage: 12 MICROGRAM (1-0-1-0, HARTKAPSEL MIT PULVER ZUR INHALATION)
  10. METAMIZOL [Concomitant]
     Active Substance: METAMIZOLE SODIUM
     Indication: Product used for unknown indication
     Dosage: 500 MILLIGRAM (1-1-1-1, TABLETTEN)
     Route: 048
  11. LEVOTHYROXINE SODIUM [Concomitant]
     Active Substance: LEVOTHYROXINE SODIUM
     Indication: Product used for unknown indication
     Dosage: 150 MICROGRAM (1-0-0-0, TABLETTEN)
     Route: 048
  12. LIRAGLUTIDE [Concomitant]
     Active Substance: LIRAGLUTIDE
     Indication: Product used for unknown indication
     Dosage: 6 MILLIGRAM PER MILLILETER (NK, FERTIGSPRITZEN)
     Route: 058
  13. MAGNESIUM [Concomitant]
     Active Substance: MAGNESIUM
     Indication: Product used for unknown indication
     Dosage: 243 MILLIGRAM (0-0-1-0, BRAUSETABLETTEN)
     Route: 048
  14. PANTOPRAZOLE SODIUM [Concomitant]
     Active Substance: PANTOPRAZOLE SODIUM
     Indication: Product used for unknown indication
     Dosage: 40 MILLIGRAM (1-0-0-0, TABLETTEN)
     Route: 048
  15. ALBUTEROL [Concomitant]
     Active Substance: ALBUTEROL
     Indication: Product used for unknown indication
     Dosage: 1.25 MG/2.5ML, 1-0-0-0, AMPULLEN
  16. SPIRIVA [Concomitant]
     Active Substance: TIOTROPIUM BROMIDE MONOHYDRATE
     Indication: Product used for unknown indication
     Dosage: 18 MICROGRAM (1-0-0-0, KAPSELN)
  17. TAMSULOSIN [Concomitant]
     Active Substance: TAMSULOSIN
     Indication: Product used for unknown indication
     Dosage: 0.4 MILLIGRAM (0-1-0-0, RETARD-KAPSELN)
     Route: 048
  18. ZOPICLONE [Concomitant]
     Active Substance: ZOPICLONE
     Indication: Product used for unknown indication
     Dosage: 7.5 MILLIGRAM ( 0-0-1-0, TABLETTEN)
     Route: 048

REACTIONS (6)
  - Lower gastrointestinal haemorrhage [Unknown]
  - Acute kidney injury [Unknown]
  - Hypokalaemia [Unknown]
  - Haematochezia [Unknown]
  - Respiratory tract haemorrhage [Unknown]
  - Anaemia [Unknown]
